FAERS Safety Report 21583463 (Version 1)
Quarter: 2022Q4

REPORT INFORMATION
  Report Type: Spontaneous
  Country: US (occurrence: US)
  Receive Date: 20221111
  Receipt Date: 20221111
  Transmission Date: 20230112
  Serious: Yes (Hospitalization, Other)
  Sender: FDA-Public Use
  Company Number: US-drreddys-LIT/USA/22/0156978

PATIENT
  Age: 57 Year
  Sex: Female

DRUGS (4)
  1. TIZANIDINE HYDROCHLORIDE [Suspect]
     Active Substance: TIZANIDINE HYDROCHLORIDE
     Indication: Pain
  2. HYDROXYZINE HYDROCHLORIDE [Concomitant]
     Active Substance: HYDROXYZINE HYDROCHLORIDE
     Indication: Product used for unknown indication
  3. DIAZEPAM [Concomitant]
     Active Substance: DIAZEPAM
     Indication: Product used for unknown indication
  4. CYCLOBENZAPRINE [Concomitant]
     Active Substance: CYCLOBENZAPRINE
     Indication: Product used for unknown indication

REACTIONS (7)
  - Toxic encephalopathy [Recovering/Resolving]
  - Dysarthria [Recovering/Resolving]
  - Somnolence [Recovering/Resolving]
  - Bradycardia [Recovering/Resolving]
  - Extra dose administered [Unknown]
  - Overdose [Unknown]
  - Product use in unapproved indication [Unknown]
